FAERS Safety Report 11570178 (Version 1)
Quarter: 2015Q3

REPORT INFORMATION
  Report Type: Spontaneous
  Country: US (occurrence: US)
  Receive Date: 20150916
  Receipt Date: 20150916
  Transmission Date: 20151125
  Serious: No
  Sender: FDA-Public Use
  Company Number: US-ELI_LILLY_AND_COMPANY-US200909000578

PATIENT
  Age: 80 Year
  Sex: Female
  Weight: 67.12 kg

DRUGS (1)
  1. FORTEO [Suspect]
     Active Substance: TERIPARATIDE
     Dosage: UNK, UNK
     Dates: start: 200710, end: 200908

REACTIONS (3)
  - Frustration [Unknown]
  - Bone density decreased [Unknown]
  - Anger [Unknown]

NARRATIVE: CASE EVENT DATE: 20090826
